FAERS Safety Report 12880106 (Version 1)
Quarter: 2016Q4

REPORT INFORMATION
  Report Type: Spontaneous
  Country: US (occurrence: US)
  Receive Date: 20161021
  Receipt Date: 20161021
  Transmission Date: 20170207
  Serious: No
  Sender: FDA-Public Use
  Company Number: None

PATIENT
  Age: 71 Year
  Sex: Female

DRUGS (1)
  1. CYCLOPHOSPHAMIDE 50MG ROXANE [Suspect]
     Active Substance: CYCLOPHOSPHAMIDE
     Indication: BREAST CANCER
     Dosage: 200MG DOSE DAILY X14D Q28D PO
     Route: 048
     Dates: start: 20160903, end: 20161011

REACTIONS (3)
  - Oropharyngeal pain [None]
  - Mouth ulceration [None]
  - Therapy cessation [None]

NARRATIVE: CASE EVENT DATE: 20161009
